FAERS Safety Report 8157331-1 (Version None)
Quarter: 2012Q1

REPORT INFORMATION
  Report Type: 
  Country: None (occurrence: None)
  Receive Date: 20120222
  Receipt Date: 20120120
  Transmission Date: 20120608
  Serious: Yes (Life-Threatening)
  Sender: FDA-Public Use
  Company Number: AT-ROCHE-769262

PATIENT
  Age: 73 Year
  Sex: Male

DRUGS (6)
  1. SPIRIVA [Concomitant]
     Indication: CHRONIC OBSTRUCTIVE PULMONARY DISEASE
     Dosage: DOSE : 18 MICROGRAM
     Route: 055
  2. PANTOPRAZOLE [Concomitant]
  3. AVASTIN [Suspect]
     Indication: NON-SMALL CELL LUNG CANCER
     Route: 042
  4. FLUTICASONE PROPIONATE/SALMETEROL [Concomitant]
     Indication: CHRONIC OBSTRUCTIVE PULMONARY DISEASE
     Route: 055
  5. LISINOPRIL [Concomitant]
     Indication: HYPERTENSION
     Dosage: TDD :10 MG/12.5 MG
     Route: 048
  6. ENOXAPARIN [Concomitant]
     Indication: DEEP VEIN THROMBOSIS

REACTIONS (2)
  - PNEUMOTHORAX [None]
  - HYDROPNEUMOTHORAX [None]
